FAERS Safety Report 7425829-7 (Version None)
Quarter: 2011Q2

REPORT INFORMATION
  Report Type: 
  Country: None (occurrence: None)
  Receive Date: 20110420
  Receipt Date: 20110411
  Transmission Date: 20111010
  Serious: Yes (Hospitalization)
  Sender: FDA-Public Use
  Company Number: BR-US-EMD SERONO, INC.-7053790

PATIENT
  Sex: Male

DRUGS (3)
  1. AMYTRIPTYLINE [Concomitant]
  2. REBIF [Suspect]
     Indication: RELAPSING-REMITTING MULTIPLE SCLEROSIS
     Dates: start: 20090901
  3. MANTIDAN [Concomitant]

REACTIONS (3)
  - HOSPITALISATION [None]
  - CHILLS [None]
  - ARTHRALGIA [None]
